FAERS Safety Report 25341295 (Version 1)
Quarter: 2025Q2

REPORT INFORMATION
  Report Type: Spontaneous
  Country: US (occurrence: US)
  Receive Date: 20250521
  Receipt Date: 20250521
  Transmission Date: 20250716
  Serious: No
  Sender: NOVARTIS
  Company Number: US-002147023-NVSC2025US079151

PATIENT
  Sex: Female

DRUGS (1)
  1. ENTRESTO [Suspect]
     Active Substance: SACUBITRIL\VALSARTAN
     Indication: Cardiac failure congestive
     Dosage: UNK, BID (1/2 (97/103MG) IN THE MORNING AND 1 (97/103 MG) AT NIGHT)
     Route: 065

REACTIONS (2)
  - Movement disorder [Unknown]
  - Glomerular filtration rate decreased [Unknown]
